FAERS Safety Report 12725203 (Version 1)
Quarter: 2016Q3

REPORT INFORMATION
  Report Type: Spontaneous
  Country: US (occurrence: US)
  Receive Date: 20160905
  Receipt Date: 20160905
  Transmission Date: 20161109
  Serious: Yes (Hospitalization)
  Sender: FDA-Public Use
  Company Number: None

PATIENT
  Age: 62 Year
  Sex: Male
  Weight: 81 kg

DRUGS (12)
  1. VITAMIN D [Concomitant]
     Active Substance: CHOLECALCIFEROL
  2. TUMERIC [Concomitant]
     Active Substance: TURMERIC
  3. SCHIFF MOVE FREE [Concomitant]
     Active Substance: CHONDROITIN SULFATE A\GLUCOSAMINE
  4. ISONIAZID. [Suspect]
     Active Substance: ISONIAZID
     Indication: LATENT TUBERCULOSIS
     Route: 048
     Dates: start: 20160801, end: 20160821
  5. POTASSIUM [Concomitant]
     Active Substance: POTASSIUM
  6. B-6 [Concomitant]
  7. FISH OIL [Concomitant]
     Active Substance: FISH OIL
  8. MULTI VITAMIN [Concomitant]
     Active Substance: VITAMINS
  9. WOBENSYM [Concomitant]
  10. PREDNISONE. [Concomitant]
     Active Substance: PREDNISONE
  11. MESALAMINE. [Concomitant]
     Active Substance: MESALAMINE
  12. MAGNESIUM [Concomitant]
     Active Substance: MAGNESIUM

REACTIONS (11)
  - Malaise [None]
  - Drug-induced liver injury [None]
  - Bone pain [None]
  - Pyrexia [None]
  - Vomiting [None]
  - Nausea [None]
  - Fatigue [None]
  - Confusional state [None]
  - Tremor [None]
  - Hyperhidrosis [None]
  - Myalgia [None]

NARRATIVE: CASE EVENT DATE: 20160820
